FAERS Safety Report 9786143 (Version 2)
Quarter: 2014Q1

REPORT INFORMATION
  Report Type: Spontaneous
  Country: GB (occurrence: GB)
  Receive Date: 20131227
  Receipt Date: 20140103
  Transmission Date: 20141002
  Serious: Yes (Hospitalization)
  Sender: FDA-Public Use
  Company Number: GB-ASTRAZENECA-2013SE92895

PATIENT
  Age: 60 Year
  Sex: Female

DRUGS (2)
  1. OMEPRAZOLE [Suspect]
     Route: 048
  2. TAZOCIN [Suspect]
     Route: 042
     Dates: start: 20111211, end: 20111213

REACTIONS (1)
  - Clostridium difficile infection [Recovered/Resolved]
